FAERS Safety Report 5618598-4 (Version None)
Quarter: 2008Q1

REPORT INFORMATION
  Report Type: 
  Country: None (occurrence: None)
  Receive Date: 20080207
  Receipt Date: 20080130
  Transmission Date: 20080703
  Serious: Yes (Hospitalization)
  Sender: FDA-Public Use
  Company Number: JP-BRACCO-BRO-012400

PATIENT
  Age: 51 Year
  Sex: Male

DRUGS (9)
  1. IOPAMIRON [Suspect]
     Indication: COMPUTERISED TOMOGRAM
     Route: 042
     Dates: start: 20071206, end: 20071206
  2. IOPAMIRON [Suspect]
     Indication: AORTIC DISSECTION
     Route: 042
     Dates: start: 20071206, end: 20071206
  3. OXYGEN [Concomitant]
     Route: 055
     Dates: start: 20071206
  4. EPINEPHRINE [Concomitant]
     Route: 030
     Dates: start: 20071206
  5. ADALAT [Concomitant]
     Indication: HYPERTENSION
     Route: 048
  6. OMEPRAZOLE [Concomitant]
     Indication: GASTRITIS
     Route: 048
  7. IOPAMIRON [Concomitant]
     Route: 065
     Dates: start: 20060316, end: 20060316
  8. IOPAMIRON [Concomitant]
     Route: 065
     Dates: start: 20060326, end: 20060326
  9. ANTIBIOTICS [Concomitant]
     Route: 065
     Dates: start: 20071208, end: 20071210

REACTIONS (7)
  - BLOOD PRESSURE DECREASED [None]
  - CHEST PAIN [None]
  - DEPRESSED LEVEL OF CONSCIOUSNESS [None]
  - DYSPNOEA [None]
  - PNEUMONIA ASPIRATION [None]
  - SHOCK [None]
  - VOMITING [None]
